FAERS Safety Report 23466813 (Version 1)
Quarter: 2024Q1

REPORT INFORMATION
  Report Type: Report from Study
  Country: US (occurrence: US)
  Receive Date: 20240201
  Receipt Date: 20240201
  Transmission Date: 20240410
  Serious: Yes (Other)
  Sender: FDA-Public Use
  Company Number: US-PFIZER INC-PV202400013648

PATIENT
  Age: 62 Year
  Sex: Female

DRUGS (16)
  1. PAXLOVID [Interacting]
     Active Substance: NIRMATRELVIR\RITONAVIR
     Indication: COVID-19 treatment
     Dosage: UNK
  2. DILTIAZEM HYDROCHLORIDE [Interacting]
     Active Substance: DILTIAZEM HYDROCHLORIDE
     Indication: Hypertension
     Dosage: 120 MG
  3. ABEMACICLIB [Interacting]
     Active Substance: ABEMACICLIB
     Indication: Breast cancer female
     Dosage: 100 MG
     Route: 048
  4. ABEMACICLIB [Interacting]
     Active Substance: ABEMACICLIB
     Dosage: 300 MG, 1X/DAY
     Route: 048
     Dates: start: 202206
  5. ABEMACICLIB [Interacting]
     Active Substance: ABEMACICLIB
     Dosage: 100 MG, 1X/DAY
     Route: 048
     Dates: start: 20220705
  6. ABEMACICLIB [Interacting]
     Active Substance: ABEMACICLIB
     Dosage: 300 MG, 1X/DAY
     Route: 048
     Dates: start: 20220705
  7. ABEMACICLIB [Interacting]
     Active Substance: ABEMACICLIB
     Dosage: 300 MG, 1X/DAY
     Dates: end: 20220728
  8. ABEMACICLIB [Interacting]
     Active Substance: ABEMACICLIB
     Dosage: 100 MG, 1X/DAY
     Route: 048
     Dates: start: 20221007, end: 202211
  9. ABEMACICLIB [Interacting]
     Active Substance: ABEMACICLIB
     Dosage: 100 MG, 1X/DAY
     Route: 048
     Dates: start: 202302
  10. CRESTOR [Interacting]
     Active Substance: ROSUVASTATIN CALCIUM
     Indication: Blood cholesterol abnormal
     Dosage: 10 MG
  11. ALPHA LIPOIC ACID [Concomitant]
     Active Substance: .ALPHA.-LIPOIC ACID
  12. BETA GLUCAN [Concomitant]
     Active Substance: BETA GLUCAN
  13. LETROZOLE [Concomitant]
     Active Substance: LETROZOLE
     Indication: Breast cancer female
     Dosage: 2.5 MG
     Dates: start: 202204
  14. VITAMIN B12 [Concomitant]
     Active Substance: CYANOCOBALAMIN
  15. VITAMIN C [Concomitant]
     Active Substance: ASCORBIC ACID
  16. VITAMIN D3 [Concomitant]
     Active Substance: CHOLECALCIFEROL

REACTIONS (22)
  - Diarrhoea [Recovered/Resolved]
  - Renal impairment [Recovering/Resolving]
  - Red blood cell count decreased [Recovering/Resolving]
  - Dizziness [Recovered/Resolved]
  - Platelet count decreased [Not Recovered/Not Resolved]
  - Depression [Recovered/Resolved]
  - Fatigue [Recovering/Resolving]
  - Anaemia [Recovering/Resolving]
  - Muscle spasms [Recovered/Resolved]
  - Neutrophil count decreased [Recovering/Resolving]
  - Mood swings [Recovered/Resolved]
  - Tooth disorder [Unknown]
  - White blood cell count decreased [Not Recovered/Not Resolved]
  - Illness [Unknown]
  - Asthenia [Recovering/Resolving]
  - Bronchitis [Recovered/Resolved]
  - COVID-19 [Recovering/Resolving]
  - Hot flush [Recovering/Resolving]
  - Drug interaction [Unknown]
  - Abdominal pain [Recovered/Resolved]
  - Feeling cold [Recovering/Resolving]
  - Insomnia [Recovered/Resolved]

NARRATIVE: CASE EVENT DATE: 20220701
